FAERS Safety Report 9434629 (Version 2)
Quarter: 2014Q1

REPORT INFORMATION
  Report Type: Spontaneous
  Country: US (occurrence: US)
  Receive Date: 20130801
  Receipt Date: 20140114
  Transmission Date: 20141002
  Serious: No
  Sender: FDA-Public Use
  Company Number: US-PFIZER INC-2013223078

PATIENT
  Age: 70 Year
  Sex: Female

DRUGS (5)
  1. LYRICA [Suspect]
     Indication: NEUROPATHY PERIPHERAL
     Dosage: 225 MG, 2X/DAY
     Route: 048
  2. HYDROCHLOROTHIAZIDE [Concomitant]
     Dosage: 75 MG, UNK
  3. ATENOLOL [Concomitant]
     Dosage: 25 MG, 2X/DAY
  4. FELODIPINE [Concomitant]
     Dosage: 2.5 MG, UNK
  5. LOSARTAN [Concomitant]
     Dosage: 50 MG, UNK

REACTIONS (1)
  - Gait disturbance [Unknown]
